FAERS Safety Report 20760616 (Version 1)
Quarter: 2022Q2

REPORT INFORMATION
  Report Type: Spontaneous
  Country: IT (occurrence: IT)
  Receive Date: 20220428
  Receipt Date: 20220428
  Transmission Date: 20220721
  Serious: Yes (Hospitalization)
  Sender: FDA-Public Use
  Company Number: IT-LUOXINA-LUOX-PHC-2022-APR-26-LIT-0009

PATIENT
  Age: 12 Year
  Sex: Male
  Weight: 34 kg

DRUGS (1)
  1. ALBUTEROL SULFATE [Suspect]
     Active Substance: ALBUTEROL SULFATE
     Indication: Asthma
     Route: 065

REACTIONS (2)
  - Lactic acidosis [Recovering/Resolving]
  - Diastolic hypotension [Recovering/Resolving]
